FAERS Safety Report 9426808 (Version 1)
Quarter: 2013Q3

REPORT INFORMATION
  Report Type: Spontaneous
  Country: US (occurrence: US)
  Receive Date: 20130730
  Receipt Date: 20130730
  Transmission Date: 20140515
  Serious: Yes (Other)
  Sender: FDA-Public Use
  Company Number: US-SANOFI-AVENTIS-2012SA085591

PATIENT
  Sex: Male

DRUGS (1)
  1. ZOLPIDEM TARTRATE EXTENDED RELEASE - WINTHROP [Suspect]
     Indication: SLEEP DISORDER
     Dosage: 2-3 TABLETS PER NIGHT
     Route: 048

REACTIONS (3)
  - Abnormal behaviour [Unknown]
  - Wrong technique in drug usage process [Unknown]
  - Extra dose administered [Unknown]
